FAERS Safety Report 5897810-0 (Version None)
Quarter: 2008Q3

REPORT INFORMATION
  Report Type: 
  Country: None (occurrence: None)
  Receive Date: 20080923
  Receipt Date: 20080912
  Transmission Date: 20090109
  Serious: Yes (Other)
  Sender: FDA-Public Use
  Company Number: 2008SP012207

PATIENT
  Age: 39 Year
  Sex: Male

DRUGS (2)
  1. NASONEX [Suspect]
     Indication: DRUG USE FOR UNKNOWN INDICATION
     Dosage: NAS
     Route: 045
     Dates: start: 20080616, end: 20080617
  2. ESCITALOPRAM [Concomitant]

REACTIONS (4)
  - BRONCHOSPASM [None]
  - CONDITION AGGRAVATED [None]
  - DYSPNOEA [None]
  - RHINITIS [None]
